FAERS Safety Report 9191467 (Version 1)
Quarter: 2013Q1

REPORT INFORMATION
  Report Type: Spontaneous
  Country: GB (occurrence: GB)
  Receive Date: 20130326
  Receipt Date: 20130326
  Transmission Date: 20140127
  Serious: Yes (Other)
  Sender: FDA-Public Use
  Company Number: PHHY2013GB026898

PATIENT
  Age: 39 Year
  Sex: Male
  Weight: 74 kg

DRUGS (2)
  1. CIPROFLOXACIN [Suspect]
     Dosage: 250 MG
     Dates: start: 20121217, end: 20121226
  2. AMOXICILLIN [Concomitant]
     Dates: start: 20121213, end: 20121218

REACTIONS (4)
  - Food intolerance [Recovering/Resolving]
  - Abdominal discomfort [Unknown]
  - Tendon disorder [Recovering/Resolving]
  - Visual impairment [Unknown]
